FAERS Safety Report 10651305 (Version 3)
Quarter: 2015Q1

REPORT INFORMATION
  Report Type: Spontaneous
  Country: FI (occurrence: FI)
  Receive Date: 20141215
  Receipt Date: 20150107
  Transmission Date: 20150720
  Serious: Yes (Life-Threatening, Hospitalization)
  Sender: FDA-Public Use
  Company Number: FI-TEVA-509386ISR

PATIENT
  Age: 72 Year
  Sex: Male

DRUGS (1)
  1. FENTANYL. [Suspect]
     Active Substance: FENTANYL
     Indication: MUSCULOSKELETAL PAIN
     Dosage: 75 MICKROGRAM/H
     Route: 062

REACTIONS (6)
  - Respiratory depression [Recovered/Resolved]
  - Respiratory acidosis [Recovered/Resolved]
  - Accidental overdose [Recovered/Resolved]
  - Toxicity to various agents [Recovered/Resolved]
  - Product use issue [Recovered/Resolved]
  - Loss of consciousness [Recovered/Resolved]
